FAERS Safety Report 23264170 (Version 3)
Quarter: 2025Q2

REPORT INFORMATION
  Report Type: Report from Study
  Country: AU (occurrence: AU)
  Receive Date: 20231205
  Receipt Date: 20250602
  Transmission Date: 20250716
  Serious: Yes (Hospitalization, Other)
  Sender: ROCHE
  Company Number: AU-ROCHE-3465662

PATIENT
  Age: 30 Year
  Sex: Female

DRUGS (1)
  1. OCREVUS [Suspect]
     Active Substance: OCRELIZUMAB
     Indication: Relapsing-remitting multiple sclerosis
     Dosage: HAS COMPLETED 2 X 300 MG INTRO DOSES
     Route: 042
     Dates: start: 20230614

REACTIONS (6)
  - Sinus disorder [Not Recovered/Not Resolved]
  - Ear infection [Unknown]
  - Sinus operation [Recovered/Resolved]
  - Tonsillectomy [Not Recovered/Not Resolved]
  - Sinusitis [Not Recovered/Not Resolved]
  - Upper respiratory tract infection [Not Recovered/Not Resolved]

NARRATIVE: CASE EVENT DATE: 20240101
